FAERS Safety Report 21389355 (Version 2)
Quarter: 2022Q4

REPORT INFORMATION
  Report Type: Spontaneous
  Country: FR (occurrence: FR)
  Receive Date: 20220929
  Receipt Date: 20221018
  Transmission Date: 20230113
  Serious: Yes (Death, Other)
  Sender: FDA-Public Use
  Company Number: FR-AFSSAPS-AVCN20220775

PATIENT
  Age: 35 Year
  Sex: Male

DRUGS (6)
  1. OLANZAPINE [Suspect]
     Active Substance: OLANZAPINE
     Indication: Product used for unknown indication
     Dosage: UNK (NR)
     Route: 065
     Dates: end: 20190518
  2. ZOPICLONE [Suspect]
     Active Substance: ZOPICLONE
     Indication: Product used for unknown indication
     Dosage: UNK (NR)
     Route: 065
     Dates: end: 20190518
  3. ALPRAZOLAM [Suspect]
     Active Substance: ALPRAZOLAM
     Indication: Product used for unknown indication
     Dosage: UNK (NR)
     Route: 065
     Dates: end: 20190518
  4. PAROXETINE [Suspect]
     Active Substance: PAROXETINE
     Indication: Product used for unknown indication
     Dosage: UNK (NR)
     Route: 065
     Dates: end: 20190518
  5. RISPERIDONE [Suspect]
     Active Substance: RISPERIDONE
     Indication: Product used for unknown indication
     Dosage: UNK (NR)
     Route: 065
     Dates: end: 20190518
  6. METHADONE [Suspect]
     Active Substance: METHADONE HYDROCHLORIDE
     Indication: Product used for unknown indication
     Dosage: UNK (NR)
     Route: 065
     Dates: end: 20190518

REACTIONS (4)
  - Drug abuse [Fatal]
  - Asphyxia [Fatal]
  - Superinfection bacterial [Fatal]
  - Respiratory depression [Fatal]
